FAERS Safety Report 4886284-4 (Version None)
Quarter: 2006Q1

REPORT INFORMATION
  Report Type: 
  Country: None (occurrence: None)
  Receive Date: 20060118
  Receipt Date: 20060118
  Transmission Date: 20060701
  Serious: No
  Sender: FDA-Public Use
  Company Number: None

PATIENT
  Age: 20 Year
  Sex: Male

DRUGS (2)
  1. INFLIXIMAB [Suspect]
     Dosage: 300 MG IV
     Route: 042
     Dates: start: 20051209
  2. DIPHENHYDRAMINE HCL [Concomitant]

REACTIONS (2)
  - BLOOD PRESSURE DIASTOLIC ABNORMAL [None]
  - RASH [None]
